FAERS Safety Report 18818608 (Version 2)
Quarter: 2021Q1

REPORT INFORMATION
  Report Type: Report from Study
  Country: PL (occurrence: PL)
  Receive Date: 20210201
  Receipt Date: 20210219
  Transmission Date: 20210419
  Serious: Yes (Hospitalization)
  Sender: FDA-Public Use
  Company Number: PL-MYOVANT SCIENCES GMBH-2020MYSCI0600004

PATIENT
  Age: 43 Year
  Sex: Female
  Weight: 56 kg

DRUGS (3)
  1. 1.0 MG ESTRADIOL / 0.5 MG NORETHINDRONE ACETATE [Suspect]
     Active Substance: ESTRADIOL\NORETHINDRONE ACETATE
     Indication: ENDOMETRIOSIS
     Dosage: ESTRADIOL 1 MG / NORETHINDRONE ACETATE 0.5 MG, QD
     Route: 048
     Dates: start: 20190307
  2. RELUGOLIX. [Suspect]
     Active Substance: RELUGOLIX
     Indication: ENDOMETRIOSIS
     Dosage: 40 MILLIGRAM, QD
     Route: 048
     Dates: start: 20190307
  3. PARACETAMOL [Concomitant]
     Active Substance: ACETAMINOPHEN
     Indication: PRODUCT USED FOR UNKNOWN INDICATION
     Dosage: 500 MILLIGRAM, TID
     Route: 065
     Dates: start: 20200609, end: 20200612

REACTIONS (2)
  - Eye pain [Recovered/Resolved]
  - Vision blurred [Recovered/Resolved]

NARRATIVE: CASE EVENT DATE: 20200612
